FAERS Safety Report 8883802 (Version 2)
Quarter: 2013Q1

REPORT INFORMATION
  Report Type: Spontaneous
  Country: US (occurrence: US)
  Receive Date: 20121102
  Receipt Date: 20130122
  Transmission Date: 20140127
  Serious: No
  Sender: FDA-Public Use
  Company Number: US-009507513-1210USA014087

PATIENT
  Sex: Female

DRUGS (2)
  1. JANUVIA [Suspect]
     Indication: LATENT AUTOIMMUNE DIABETES IN ADULTS
     Dosage: UNK
     Route: 048
     Dates: start: 201110, end: 20121025
  2. INSULIN [Concomitant]

REACTIONS (2)
  - Fatigue [Recovering/Resolving]
  - Pain [Recovering/Resolving]
